FAERS Safety Report 14399716 (Version 3)
Quarter: 2018Q1

REPORT INFORMATION
  Report Type: Spontaneous
  Country: US (occurrence: US)
  Receive Date: 20180117
  Receipt Date: 20180219
  Transmission Date: 20180509
  Serious: Yes (Other)
  Sender: FDA-Public Use
  Company Number: US-JNJFOC-20171227441

PATIENT
  Age: 74 Year
  Sex: Male
  Weight: 98.87 kg

DRUGS (5)
  1. SERTRALINE [Concomitant]
     Active Substance: SERTRALINE HYDROCHLORIDE
     Route: 065
     Dates: end: 201712
  2. XANAX [Concomitant]
     Active Substance: ALPRAZOLAM
     Route: 065
     Dates: end: 201712
  3. XARELTO [Suspect]
     Active Substance: RIVAROXABAN
     Indication: PRODUCT USED FOR UNKNOWN INDICATION
     Route: 048
  4. ADEMPAS [Suspect]
     Active Substance: RIOCIGUAT
     Indication: PULMONARY HYPERTENSION
     Route: 048
     Dates: start: 20171128
  5. DIOVAN [Concomitant]
     Active Substance: VALSARTAN
     Route: 065

REACTIONS (10)
  - Blood pressure diastolic increased [Unknown]
  - Fatigue [Unknown]
  - Atrial fibrillation [Not Recovered/Not Resolved]
  - Dyspnoea exertional [Unknown]
  - Amnesia [Unknown]
  - Hypersomnia [Unknown]
  - Epistaxis [Unknown]
  - Cyanosis [Unknown]
  - Presyncope [Unknown]
  - Ataxia [Unknown]

NARRATIVE: CASE EVENT DATE: 2017
